FAERS Safety Report 9913101 (Version 1)
Quarter: 2014Q1

REPORT INFORMATION
  Report Type: Spontaneous
  Country: US (occurrence: None)
  Receive Date: 20140218
  Receipt Date: 20140218
  Transmission Date: 20141002
  Serious: Yes (Other)
  Sender: FDA-Public Use
  Company Number: None

PATIENT
  Age: 10 Year
  Sex: Female
  Weight: 40 kg

DRUGS (3)
  1. LITHIUM [Suspect]
     Dosage: 150MG (1 CAP) + 300MG (1 CAP)  150MG AM, 300MG HS
     Route: 048
     Dates: start: 20140213, end: 20140214
  2. RISPERDAL [Concomitant]
  3. ACETAMINOPHEN [Concomitant]

REACTIONS (3)
  - Rash [None]
  - Pruritus [None]
  - Rash [None]
